FAERS Safety Report 6357487-7 (Version None)
Quarter: 2009Q3

REPORT INFORMATION
  Report Type: 
  Country: None (occurrence: None)
  Receive Date: 20090916
  Receipt Date: 20090904
  Transmission Date: 20100115
  Serious: Yes (Hospitalization)
  Sender: FDA-Public Use
  Company Number: US-ROCHE-655011

PATIENT
  Sex: Male

DRUGS (7)
  1. FUZEON [Suspect]
     Dosage: DISCONTINUED FOR HOSPITAL ADMISSION
     Route: 065
     Dates: end: 20080101
  2. FUZEON [Suspect]
     Dosage: STOPOPED DURING SECOND HOSPITALISATION
     Route: 065
     Dates: start: 20080101, end: 20080101
  3. FUZEON [Suspect]
     Route: 065
     Dates: start: 20090101
  4. NORVIR [Concomitant]
  5. SULFAMETHOXAZOLE [Concomitant]
  6. PREZISTA [Concomitant]
  7. TRAVAD [Concomitant]
     Dosage: DRUG: TRAVADA

REACTIONS (3)
  - GASTROINTESTINAL SURGERY [None]
  - INJECTION SITE URTICARIA [None]
  - INJURY [None]
